FAERS Safety Report 6435454-2 (Version None)
Quarter: 2009Q4

REPORT INFORMATION
  Report Type: 
  Country: None (occurrence: None)
  Receive Date: 20091106
  Receipt Date: 20091022
  Transmission Date: 20100525
  Serious: Yes (Life-Threatening, Hospitalization)
  Sender: FDA-Public Use
  Company Number: MC200900390

PATIENT
  Age: 51 Year
  Sex: Male
  Weight: 70 kg

DRUGS (7)
  1. ANGIOMAX [Suspect]
     Indication: PERCUTANEOUS CORONARY INTERVENTION
     Dosage: 0.75 MG/KG, BOLUS; INTRAVENOUS; 1.75 MG/KG, HR; INTRAVENOUS
     Route: 042
     Dates: start: 20091018, end: 20091028
  2. ASPIRIN [Concomitant]
  3. PLAVIX [Concomitant]
  4. HEPARIN [Concomitant]
  5. LOVENOX [Concomitant]
  6. BETA BLOCKING AGENTS [Concomitant]
  7. NICOTINE (NICOTINE POLACRILEX) PATCH [Concomitant]

REACTIONS (6)
  - CORONARY ARTERY STENOSIS [None]
  - CORONARY ARTERY THROMBOSIS [None]
  - DEVICE OCCLUSION [None]
  - IN-STENT CORONARY ARTERY RESTENOSIS [None]
  - MYOCARDIAL INFARCTION [None]
  - SURGICAL PROCEDURE REPEATED [None]
